FAERS Safety Report 11751689 (Version 1)
Quarter: 2015Q4

REPORT INFORMATION
  Report Type: Spontaneous
  Country: US (occurrence: US)
  Receive Date: 20151118
  Receipt Date: 20151118
  Transmission Date: 20160304
  Serious: Yes (Hospitalization, Other)
  Sender: FDA-Public Use
  Company Number: PHHY2015US131243

PATIENT
  Sex: Female

DRUGS (2)
  1. VOTRIENT [Suspect]
     Active Substance: PAZOPANIB HYDROCHLORIDE
     Indication: METASTATIC RENAL CELL CARCINOMA
     Dosage: ?????
     Route: 065
  2. LEVEMIR [Concomitant]
     Active Substance: INSULIN DETEMIR
     Indication: TYPE 2 DIABETES MELLITUS
     Route: 065

REACTIONS (17)
  - Feeling abnormal [Unknown]
  - Hypothyroidism [Recovering/Resolving]
  - Nausea [Recovered/Resolved]
  - Metastases to lung [Unknown]
  - Metastases to liver [Unknown]
  - Cough [Recovering/Resolving]
  - Pneumothorax [Unknown]
  - Atelectasis [Recovering/Resolving]
  - Dehydration [Recovered/Resolved]
  - Haemoglobin decreased [Not Recovered/Not Resolved]
  - Pyrexia [Unknown]
  - Bronchitis [Recovering/Resolving]
  - Vomiting [Recovered/Resolved]
  - Productive cough [Recovering/Resolving]
  - Blood pressure increased [Unknown]
  - Type 2 diabetes mellitus [Not Recovered/Not Resolved]
  - Dyspnoea [Unknown]
